FAERS Safety Report 10719632 (Version 4)
Quarter: 2015Q2

REPORT INFORMATION
  Report Type: Spontaneous
  Country: US (occurrence: US)
  Receive Date: 20150119
  Receipt Date: 20150402
  Transmission Date: 20150821
  Serious: Yes (Other)
  Sender: FDA-Public Use
  Company Number: US-UNITED THERAPEUTICS-UNT-2014-010877

PATIENT
  Age: 57 Year
  Sex: Female
  Weight: 101.59 kg

DRUGS (5)
  1. LETAIRIS [Concomitant]
     Active Substance: AMBRISENTAN
     Indication: PRODUCT USED FOR UNKNOWN INDICATION
  2. TYVASO [Suspect]
     Active Substance: TREPROSTINIL
     Dosage: 18-54 MICROGRAMS, QID
     Dates: start: 20140804
  3. TYVASO [Suspect]
     Active Substance: TREPROSTINIL
     Indication: PULMONARY HYPERTENSION
     Dosage: 18-54 MICROGRAMS, QID
     Dates: start: 20140804
  4. TYVASO [Suspect]
     Active Substance: TREPROSTINIL
     Dosage: 18-54 MICROGRAMS, QID
     Dates: start: 20140804
  5. TYVASO [Suspect]
     Active Substance: TREPROSTINIL
     Dosage: 18-90 MICROGRAMS, QID

REACTIONS (8)
  - Infection [Unknown]
  - Haemoglobin decreased [Unknown]
  - Nasal congestion [Unknown]
  - White blood cell count increased [Unknown]
  - Anaemia [Unknown]
  - Weight decreased [Unknown]
  - Dry mouth [Unknown]
  - Rhinitis [Unknown]

NARRATIVE: CASE EVENT DATE: 201411
